FAERS Safety Report 9727496 (Version 1)
Quarter: 2013Q4

REPORT INFORMATION
  Report Type: Spontaneous
  Country: AU (occurrence: None)
  Receive Date: 20131127
  Receipt Date: 20131127
  Transmission Date: 20140711
  Serious: Yes (Other)
  Sender: FDA-Public Use
  Company Number: APIR20130018

PATIENT
  Age: 34 Year
  Sex: Female

DRUGS (2)
  1. ALPRAZOLAM IR TABLETS [Suspect]
     Indication: PRODUCT USED FOR UNKNOWN INDICATION
  2. TAPENTADOL (TAPENTADOL) [Concomitant]

REACTIONS (1)
  - Cardiac failure [None]
